FAERS Safety Report 9725836 (Version 1)
Quarter: 2013Q4

REPORT INFORMATION
  Report Type: Spontaneous
  Country: US (occurrence: US)
  Receive Date: 20131203
  Receipt Date: 20131203
  Transmission Date: 20140711
  Serious: No
  Sender: FDA-Public Use
  Company Number: US-BAYER-2013-146588

PATIENT
  Age: 34 Year
  Sex: Female

DRUGS (2)
  1. BETASERON [Suspect]
     Dosage: UNK
     Dates: start: 201112
  2. COPAXONE [Concomitant]
     Dosage: UNK
     Dates: start: 201202

REACTIONS (1)
  - Hypersensitivity [None]
